FAERS Safety Report 21042407 (Version 1)
Quarter: 2022Q3

REPORT INFORMATION
  Report Type: Spontaneous
  Country: DE (occurrence: DE)
  Receive Date: 20220705
  Receipt Date: 20220705
  Transmission Date: 20221027
  Serious: Yes (Congenital Anomaly, Other)
  Sender: FDA-Public Use
  Company Number: DE-NOVARTISPH-NVSC2022DE146934

PATIENT
  Age: 1 Day
  Sex: Male
  Weight: 3.69 kg

DRUGS (4)
  1. OLANZAPINE [Suspect]
     Active Substance: OLANZAPINE
     Indication: Foetal exposure during pregnancy
     Dosage: (MATERNAL DOSE:5 MG, QD(5 [MG/D ]))
     Route: 064
     Dates: start: 20201129, end: 20210909
  2. SERTRALINE [Suspect]
     Active Substance: SERTRALINE HYDROCHLORIDE
     Indication: Foetal exposure during pregnancy
     Dosage: (MATERNAL DOSE: 150 MG, QD (150 [MG/D ]))
     Route: 064
     Dates: start: 20201129, end: 20210909
  3. BOOSTRIX [Concomitant]
     Active Substance: TETANUS TOXOID, REDUCED DIPHTHERIA TOXOID AND ACELLULAR PERTUSSIS VACCINE, ADSORBED ANTIGENS
     Indication: Foetal exposure during pregnancy
     Dosage: (MATERNAL DOSE: UNK)
     Route: 064
     Dates: start: 20210709, end: 20210709
  4. UNACID [Concomitant]
     Indication: Foetal exposure during pregnancy
     Dosage: (MATERNAL DOSE: UNK)
     Route: 064

REACTIONS (6)
  - Fever neonatal [Recovered/Resolved]
  - Agitation neonatal [Recovered/Resolved]
  - Dehydration [Recovered/Resolved]
  - Congenital hydronephrosis [Unknown]
  - Congenital megaureter [Unknown]
  - Foetal exposure during pregnancy [Unknown]

NARRATIVE: CASE EVENT DATE: 20210901
